FAERS Safety Report 6933716-3 (Version None)
Quarter: 2010Q3

REPORT INFORMATION
  Report Type: 
  Country: None (occurrence: None)
  Receive Date: 20100820
  Receipt Date: 20100720
  Transmission Date: 20110219
  Serious: No
  Sender: FDA-Public Use
  Company Number: US-BAYER-201028664NA

PATIENT
  Sex: Female

DRUGS (3)
  1. ULTRAVIST 150 [Suspect]
     Indication: COMPUTERISED TOMOGRAM ABDOMEN
     Dosage: TOTAL DAILY DOSE: 129 ML  UNIT DOSE: 300 ML
     Route: 042
  2. VITAMIN TAB [Concomitant]
  3. ADVIL LIQUI-GELS [Concomitant]

REACTIONS (2)
  - NASAL CONGESTION [None]
  - SNEEZING [None]
